FAERS Safety Report 5798832-0 (Version None)
Quarter: 2008Q3

REPORT INFORMATION
  Report Type: 
  Country: None (occurrence: None)
  Receive Date: 20080702
  Receipt Date: 20080626
  Transmission Date: 20090109
  Serious: Yes (Hospitalization)
  Sender: FDA-Public Use
  Company Number: US-ABBOTT-08P-163-0460179-00

PATIENT
  Sex: Male

DRUGS (4)
  1. DEPAKOTE [Suspect]
     Indication: DRUG USE FOR UNKNOWN INDICATION
     Route: 048
  2. CLOZAPINE [Suspect]
     Indication: SCHIZOAFFECTIVE DISORDER
     Route: 048
     Dates: start: 20050101
  3. BUPROPION HCL [Concomitant]
     Indication: DRUG USE FOR UNKNOWN INDICATION
     Route: 048
  4. LEVOTHYROXINE SODIUM [Concomitant]
     Indication: DRUG USE FOR UNKNOWN INDICATION
     Route: 048

REACTIONS (4)
  - DRUG TOXICITY [None]
  - PANCYTOPENIA [None]
  - PNEUMONIA [None]
  - RENAL FAILURE ACUTE [None]
